FAERS Safety Report 24994744 (Version 1)
Quarter: 2025Q1

REPORT INFORMATION
  Report Type: Spontaneous
  Country: FR (occurrence: FR)
  Receive Date: 20250221
  Receipt Date: 20250221
  Transmission Date: 20250408
  Serious: Yes (Hospitalization, Other)
  Sender: RANBAXY
  Company Number: FR-AFSSAPS-MA2024001884

PATIENT
  Age: 88 Year
  Sex: Male

DRUGS (1)
  1. CIPROFLOXACIN [Suspect]
     Active Substance: CIPROFLOXACIN
     Indication: Wound abscess
     Route: 048
     Dates: start: 20241110

REACTIONS (3)
  - Hepatic cytolysis [Unknown]
  - Jaundice [Unknown]
  - Pruritus [Unknown]

NARRATIVE: CASE EVENT DATE: 20241122
